FAERS Safety Report 8183199-3 (Version None)
Quarter: 2012Q1

REPORT INFORMATION
  Report Type: 
  Country: None (occurrence: None)
  Receive Date: 20120227
  Receipt Date: 20110209
  Transmission Date: 20120608
  Serious: Yes (Other)
  Sender: FDA-Public Use
  Company Number: 1000018758

PATIENT
  Age: 77 Year
  Sex: Male

DRUGS (8)
  1. HYDROCHLOROTHIAZIDE [Concomitant]
  2. AMLODIPINE [Concomitant]
  3. COUMADIN [Concomitant]
  4. BENICAR [Concomitant]
  5. GABAPENTIN [Concomitant]
  6. BYSTOLIC [Suspect]
     Indication: HYPERTENSION
     Dosage: 10 MG (10 MG, 1 IN 1 D), ORAL
     Route: 048
     Dates: start: 20100101, end: 20110201
  7. SIMVASTATIN [Concomitant]
  8. CELEBREX [Concomitant]

REACTIONS (1)
  - BRADYCARDIA [None]
